FAERS Safety Report 6105918-X (Version None)
Quarter: 2009Q1

REPORT INFORMATION
  Report Type: 
  Country: None (occurrence: None)
  Receive Date: 20090306
  Receipt Date: 20090306
  Transmission Date: 20090719
  Serious: No
  Sender: FDA-Public Use
  Company Number: None

PATIENT
  Age: 76 Year
  Sex: Female
  Weight: 56.6996 kg

DRUGS (1)
  1. AVELOX [Suspect]
     Indication: PHARYNGEAL DISORDER
     Dosage: 1 1 PER P.O.
     Route: 048
     Dates: start: 20090212

REACTIONS (3)
  - CHAPPED LIPS [None]
  - GLOSSODYNIA [None]
  - LIP SWELLING [None]
